FAERS Safety Report 6862196-1 (Version None)
Quarter: 2010Q3

REPORT INFORMATION
  Report Type: 
  Country: None (occurrence: None)
  Receive Date: 20100719
  Receipt Date: 20100706
  Transmission Date: 20110219
  Serious: Yes (Hospitalization)
  Sender: FDA-Public Use
  Company Number: UTC-001233

PATIENT
  Age: 70 Year
  Sex: Female
  Weight: 71.4 kg

DRUGS (13)
  1. REMODULIN [Suspect]
     Dosage: 82.08 UG/KG (0.057 UG/KG, 1 IN 1 MIN), SUBCUTANEOUS
     Route: 058
     Dates: start: 20080125
  2. CENTRUM SILVER (CENTRUM SILVER /01292501/) [Concomitant]
  3. SINGULARI (MONTELUKAST) [Concomitant]
  4. JANUVIA [Concomitant]
  5. ZOLOFT [Concomitant]
  6. REVATIO [Concomitant]
  7. METFORMIN HCL [Concomitant]
  8. FOLIC ACID [Concomitant]
  9. LANOXIN [Concomitant]
  10. FLONASE [Concomitant]
  11. ADVAIR DISKUS 100/50 [Concomitant]
  12. PREVACID [Concomitant]
  13. CRESTOR [Concomitant]

REACTIONS (1)
  - DEHYDRATION [None]
